FAERS Safety Report 19351881 (Version 3)
Quarter: 2021Q3

REPORT INFORMATION
  Report Type: Spontaneous
  Country: JP (occurrence: JP)
  Receive Date: 20210531
  Receipt Date: 20210816
  Transmission Date: 20211014
  Serious: Yes (Hospitalization, Other)
  Sender: FDA-Public Use
  Company Number: JP-GLAXOSMITHKLINE-JP2021JPN112606

PATIENT
  Age: 83 Year
  Sex: Female
  Weight: 35 kg

DRUGS (10)
  1. SODIUM BICARBONATE. [Concomitant]
     Active Substance: SODIUM BICARBONATE
     Dosage: 1 G, QD
     Route: 048
  2. VALTREX [Suspect]
     Active Substance: VALACYCLOVIR HYDROCHLORIDE
     Indication: HERPES ZOSTER
     Dosage: UNK
     Route: 048
  3. SODIUM BICARBONATE. [Concomitant]
     Active Substance: SODIUM BICARBONATE
     Dosage: 2 G, QD
     Route: 048
  4. TARLIGE TABLETS [Concomitant]
     Dosage: 2.5 MG, QD, IN THE EVENING
     Route: 048
  5. PREDNISOLONE TABLETS [Concomitant]
     Active Substance: PREDNISOLONE
     Dosage: UNK
     Dates: start: 20201008
  6. TAKEPRON OD TABLETS [Concomitant]
     Dosage: 30 MG, QD, AFTER BREAKFAST
     Route: 048
  7. CALONAL [Concomitant]
     Active Substance: ACETAMINOPHEN
     Dosage: UNK, PRN
     Route: 048
  8. PREDNISOLONE TABLETS [Concomitant]
     Active Substance: PREDNISOLONE
     Dosage: 4 MG, QD, AFTER BREAKFAST
     Route: 048
  9. AZILVA TABLETS [Concomitant]
     Dosage: 10 MG, QD, IN THE EVENING
     Route: 048
     Dates: end: 20201006
  10. NIFEDIPINE CR TABLETS [Concomitant]
     Dosage: 40 MG, QD
     Route: 048

REACTIONS (9)
  - Renal tubular acidosis [Recovering/Resolving]
  - Acidosis [Unknown]
  - Hyperkalaemia [Recovering/Resolving]
  - Dyskinesia [Recovered/Resolved]
  - Dehydration [Unknown]
  - Malaise [Recovering/Resolving]
  - Eating disorder [Unknown]
  - Overdose [Unknown]
  - Metabolic acidosis [Unknown]

NARRATIVE: CASE EVENT DATE: 20201006
